FAERS Safety Report 11014851 (Version 2)
Quarter: 2015Q2

REPORT INFORMATION
  Report Type: Spontaneous
  Country: US (occurrence: US)
  Receive Date: 20150412
  Receipt Date: 20150525
  Transmission Date: 20150821
  Serious: No
  Sender: FDA-Public Use
  Company Number: US-JNJFOC-20141103364

PATIENT
  Age: 42 Year
  Sex: Male
  Weight: 99.79 kg

DRUGS (1)
  1. TRAMADOL HYDROCHLORIDE. [Suspect]
     Active Substance: TRAMADOL HYDROCHLORIDE
     Indication: PAIN
     Dosage: FOUR TIMES A DAY
     Route: 065
     Dates: start: 201410, end: 201410

REACTIONS (2)
  - Drug dose omission [Unknown]
  - Drug screen positive [Unknown]

NARRATIVE: CASE EVENT DATE: 201410
